FAERS Safety Report 25869187 (Version 1)
Quarter: 2025Q4

REPORT INFORMATION
  Report Type: Report from Study
  Country: US (occurrence: US)
  Receive Date: 20251001
  Receipt Date: 20251001
  Transmission Date: 20260118
  Serious: Yes (Other)
  Sender: ABBVIE
  Company Number: US-ABBVIE-6482975

PATIENT
  Age: 48 Year
  Sex: Female

DRUGS (1)
  1. SYNTHROID [Suspect]
     Active Substance: LEVOTHYROXINE SODIUM
     Indication: Product used for unknown indication
     Dosage: 88 MCG / TAKE 1 TABLET ON AN EMPTY STOMACH
     Route: 048
     Dates: start: 20220519

REACTIONS (1)
  - Ankle operation [Recovering/Resolving]

NARRATIVE: CASE EVENT DATE: 20250917
